FAERS Safety Report 4844687-8 (Version None)
Quarter: 2005Q4

REPORT INFORMATION
  Report Type: 
  Country: None (occurrence: None)
  Receive Date: 20051201
  Receipt Date: 20051201
  Transmission Date: 20060501
  Serious: Yes (Other)
  Sender: FDA-Public Use
  Company Number: None

PATIENT
  Sex: Female
  Weight: 158.759 kg

DRUGS (4)
  1. MORPHINE [Suspect]
     Indication: PAIN
  2. MORPHINE [Suspect]
     Indication: RHEUMATOID ARTHRITIS
  3. METHADONE [Suspect]
     Indication: PAIN
     Dosage: 10 TID
     Dates: start: 20051101
  4. METHADONE [Suspect]
     Indication: RHEUMATOID ARTHRITIS
     Dosage: 10 TID
     Dates: start: 20051101

REACTIONS (4)
  - DIPLOPIA [None]
  - DIZZINESS [None]
  - HALLUCINATION [None]
  - NAUSEA [None]
